FAERS Safety Report 8243319-9 (Version None)
Quarter: 2012Q1

REPORT INFORMATION
  Report Type: 
  Country: None (occurrence: None)
  Receive Date: 20120329
  Receipt Date: 20120320
  Transmission Date: 20120608
  Serious: Yes (Hospitalization)
  Sender: FDA-Public Use
  Company Number: PL-ROCHE-1050974

PATIENT
  Sex: Female
  Weight: 42 kg

DRUGS (9)
  1. SPIRIVA [Concomitant]
  2. AMLOZEK [Concomitant]
     Indication: HYPERTENSION
     Route: 048
  3. BISOPROLOL FUMARATE [Concomitant]
     Indication: HYPERTENSION
     Route: 048
  4. BONIVA [Suspect]
     Indication: OSTEOPOROSIS
     Route: 042
     Dates: start: 20110912, end: 20120313
  5. OXIS [Concomitant]
  6. PLAVIX [Concomitant]
  7. POLPRAZOL [Concomitant]
     Indication: PEPTIC ULCER
  8. ATORVASTATIN CALCIUM [Concomitant]
     Indication: DYSLIPIDAEMIA
     Route: 048
  9. FLUTICASONE PROPIONATE [Concomitant]
     Indication: CHRONIC OBSTRUCTIVE PULMONARY DISEASE

REACTIONS (1)
  - ADMINISTRATION SITE REACTION [None]
